FAERS Safety Report 23179801 (Version 1)
Quarter: 2023Q4

REPORT INFORMATION
  Report Type: Report from Study
  Country: EG (occurrence: EG)
  Receive Date: 20231114
  Receipt Date: 20231114
  Transmission Date: 20240109
  Serious: Yes (Disabling, Other)
  Sender: FDA-Public Use
  Company Number: EG-002147023-NVSC2023EG239089

PATIENT
  Age: 32 Year
  Sex: Female

DRUGS (7)
  1. GILENYA [Suspect]
     Active Substance: FINGOLIMOD HYDROCHLORIDE
     Indication: Multiple sclerosis
     Dosage: 0.5 MG, QD
     Route: 048
  2. VITAMIN D NOS [Concomitant]
     Active Substance: VITAMIN D NOS
     Indication: Supplementation therapy
     Dosage: ONE TABLET AFTER LUNCH
     Route: 065
     Dates: start: 2021
  3. VITAMIN B12 [Concomitant]
     Active Substance: CYANOCOBALAMIN
     Indication: Supplementation therapy
     Dosage: ONE TABLET AFTER LAUNCH
     Route: 065
     Dates: start: 2021
  4. GAPTIN [Concomitant]
     Indication: Muscle relaxant therapy
     Dosage: 300 MG (ONE TABLET IN THE MORNING AND ONE TABLET IN THE EVENING)
     Route: 065
     Dates: start: 2021
  5. GAPTIN [Concomitant]
     Indication: Neuritis
     Dosage: 600 MG (ONE TABLET AFTER LUNCH)
     Route: 065
     Dates: start: 2021
  6. DIMRA [Concomitant]
     Indication: Neuropathy peripheral
     Dosage: UNK (ONCE OR TWICE DAILY WHEN NEEDED)
     Route: 065
  7. DIMRA [Concomitant]
     Indication: Fatigue

REACTIONS (6)
  - Alopecia [Not Recovered/Not Resolved]
  - Multiple sclerosis [Not Recovered/Not Resolved]
  - Condition aggravated [Not Recovered/Not Resolved]
  - White blood cell count decreased [Unknown]
  - Vitamin D decreased [Unknown]
  - Product dispensing issue [Unknown]

NARRATIVE: CASE EVENT DATE: 20230829
